FAERS Safety Report 9553135 (Version 1)
Quarter: 2013Q2

REPORT INFORMATION
  Report Type: Spontaneous
  Country: US (occurrence: None)
  Receive Date: 20130507
  Receipt Date: 20130507
  Transmission Date: 20140414
  Serious: Yes (Other)
  Sender: FDA-Public Use
  Company Number: PHEH2012US012619

PATIENT
  Age: 84 Year
  Sex: Female

DRUGS (3)
  1. TASIGNA (AMN107) CAPSULE [Suspect]
  2. CRESTOR (ROSUVASTATIN CALCIUM) [Concomitant]
  3. ALLOPURINOL (ALLOPURINOL) [Concomitant]

REACTIONS (1)
  - Abscess [None]
